FAERS Safety Report 8784329 (Version 1)
Quarter: 2012Q4

REPORT INFORMATION
  Report Type: 
  Country: FR (occurrence: US)
  Receive Date: 20120913
  Receipt Date: 20120913
  Transmission Date: 20130627
  Serious: Yes (Other)
  Sender: FDA-Public Use
  Company Number: US-009507513-1209USA003587

PATIENT

DRUGS (2)
  1. ISENTRESS [Suspect]
     Dosage: 400 mg, bid
     Route: 048
  2. TRUVADA [Suspect]
     Dosage: 1 DF, qd
     Route: 048

REACTIONS (2)
  - Vertigo [Unknown]
  - Headache [Unknown]
